FAERS Safety Report 24417194 (Version 1)
Quarter: 2024Q4

REPORT INFORMATION
  Report Type: Other
  Country: ES (occurrence: ES)
  Receive Date: 20241009
  Receipt Date: 20241009
  Transmission Date: 20250115
  Serious: No
  Sender: GLENMARK
  Company Number: None

PATIENT

DRUGS (7)
  1. LACOSAMIDE [Interacting]
     Active Substance: LACOSAMIDE
     Indication: Epilepsy
     Dosage: 200 MILLIGRAM, EVERY 12 HOURS
     Route: 048
     Dates: start: 202311, end: 20231202
  2. HALOPERIDOL [Interacting]
     Active Substance: HALOPERIDOL
     Indication: Epilepsy
     Dosage: 5 GTT DROPS, EVERY 8 HOURS
     Route: 048
     Dates: start: 202311, end: 20231202
  3. RISPERIDONE [Interacting]
     Active Substance: RISPERIDONE
     Indication: Product used for unknown indication
     Dosage: 0.5 MILLIGRAM, EVERY 24 HOURS
     Route: 048
     Dates: start: 202312, end: 20231202
  4. FLUOXETINE HYDROCHLORIDE [Interacting]
     Active Substance: FLUOXETINE HYDROCHLORIDE
     Indication: Product used for unknown indication
     Dosage: 20 MILLIGRAM, EVERY 24 HOURS
     Route: 048
     Dates: start: 202312, end: 20231202
  5. CARBAMAZEPINE [Interacting]
     Active Substance: CARBAMAZEPINE
     Indication: Epilepsy
     Dosage: 200 MILLIGRAM, EVERY 8 HOURS
     Route: 048
     Dates: start: 202311, end: 20231202
  6. CLOBAZAM [Interacting]
     Active Substance: CLOBAZAM
     Indication: Epilepsy
     Dosage: 10 MILLIGRAM, EVERY 12 HOURS
     Route: 048
     Dates: start: 202311, end: 20231202
  7. ESLICARBAZEPINE [Interacting]
     Active Substance: ESLICARBAZEPINE
     Indication: Epilepsy
     Dosage: 800 MILLIGRAM, EVERY 24 HOURS
     Route: 048
     Dates: start: 202312, end: 20231202

REACTIONS (4)
  - Product use issue [Unknown]
  - Drug interaction [Unknown]
  - Dizziness [Recovered/Resolved]
  - Somnolence [Recovered/Resolved]

NARRATIVE: CASE EVENT DATE: 20231201
